FAERS Safety Report 5065093-X (Version None)
Quarter: 2006Q3

REPORT INFORMATION
  Report Type: 
  Country: None (occurrence: None)
  Receive Date: 20060728
  Receipt Date: 20060123
  Transmission Date: 20061208
  Serious: No
  Sender: FDA-Public Use
  Company Number: US-AMGEN-KDL179823

PATIENT
  Sex: Male

DRUGS (7)
  1. PROCRIT [Suspect]
     Indication: PRE-EXISTING DISEASE
     Route: 058
     Dates: start: 20060120
  2. INTERFERON ALFACON-1 [Suspect]
     Route: 058
     Dates: start: 20060120
  3. PROPRANOLOL [Suspect]
     Dates: start: 20051230
  4. LISINOPRIL [Suspect]
     Dates: start: 20010101
  5. ACIPHEX [Suspect]
     Dates: start: 20050101
  6. CELEXA [Suspect]
     Dates: start: 20060120
  7. RIBAVIRIN [Concomitant]
     Dates: start: 20060120

REACTIONS (1)
  - STOMACH DISCOMFORT [None]
